FAERS Safety Report 16057602 (Version 2)
Quarter: 2019Q1

REPORT INFORMATION
  Report Type: Spontaneous
  Country: US (occurrence: US)
  Receive Date: 20190311
  Receipt Date: 20190329
  Transmission Date: 20190418
  Serious: No
  Sender: FDA-Public Use
  Company Number: US-SA-2019SA062242

PATIENT
  Sex: Male

DRUGS (1)
  1. LANTUS SOLOSTAR [Suspect]
     Active Substance: INSULIN GLARGINE
     Indication: TYPE 2 DIABETES MELLITUS
     Dosage: 56 IU, HS
     Route: 065

REACTIONS (3)
  - Blood glucose abnormal [Unknown]
  - Blood glucose increased [Unknown]
  - Therapeutic response decreased [Unknown]
